FAERS Safety Report 4503085-7 (Version None)
Quarter: 2004Q4

REPORT INFORMATION
  Report Type: 
  Country: None (occurrence: None)
  Receive Date: 20041116
  Receipt Date: 20041116
  Transmission Date: 20050328
  Serious: Yes (Life-Threatening)
  Sender: FDA-Public Use
  Company Number: None

PATIENT
  Age: 83 Year
  Sex: Female
  Weight: 77.1115 kg

DRUGS (1)
  1. HUMULIN 70/30 [Suspect]

REACTIONS (1)
  - MEDICATION ERROR [None]
